FAERS Safety Report 8726754 (Version 2)
Quarter: 2012Q4

REPORT INFORMATION
  Report Type: Report from Study
  Country: US (occurrence: US)
  Receive Date: 20120816
  Receipt Date: 20120829
  Transmission Date: 20130627
  Serious: Yes (Death, Hospitalization)
  Sender: FDA-Public Use
  Company Number: US-EISAI INC-E3810-05797-SOL-US

PATIENT
  Age: 64 None
  Sex: Male

DRUGS (1)
  1. ACIPHEX (RABEPRAZOLE) [Suspect]
     Indication: GERD
     Route: 048

REACTIONS (11)
  - Death [Fatal]
  - Dyspnoea [Unknown]
  - Chest pain [Unknown]
  - Dyspnoea [Unknown]
  - Fatigue [Unknown]
  - Wheezing [Unknown]
  - Cough [Unknown]
  - Pulmonary congestion [Unknown]
  - Hypertension [Unknown]
  - Bronchospasm [Unknown]
  - Headache [Unknown]
